FAERS Safety Report 7523081-5 (Version None)
Quarter: 2011Q2

REPORT INFORMATION
  Report Type: 
  Country: None (occurrence: None)
  Receive Date: 20110525
  Receipt Date: 20110518
  Transmission Date: 20111010
  Serious: Yes (Other)
  Sender: FDA-Public Use
  Company Number: 2011SP022897

PATIENT
  Age: 25 Year
  Sex: Female
  Weight: 61.2356 kg

DRUGS (1)
  1. IMPLANON [Suspect]
     Indication: CONTRACEPTION
     Dates: start: 20101118

REACTIONS (2)
  - MEMORY IMPAIRMENT [None]
  - CONFUSIONAL STATE [None]
